FAERS Safety Report 11767638 (Version 1)
Quarter: 2015Q4

REPORT INFORMATION
  Report Type: Spontaneous
  Country: GB (occurrence: GB)
  Receive Date: 20151123
  Receipt Date: 20151123
  Transmission Date: 20160304
  Serious: Yes (Hospitalization)
  Sender: FDA-Public Use
  Company Number: PHHY2015GB147795

PATIENT
  Sex: Male

DRUGS (4)
  1. ADOPORT [Suspect]
     Active Substance: TACROLIMUS
     Indication: PRODUCT USED FOR UNKNOWN INDICATION
     Dosage: 1 MG, UNK
     Route: 048
  2. MYFENAX [Suspect]
     Active Substance: MYCOPHENOLATE MOFETIL
     Indication: IMMUNOSUPPRESSION
     Dosage: 500 MG, UNK
     Route: 048
  3. ADOPORT [Suspect]
     Active Substance: TACROLIMUS
     Dosage: 5 MG, UNK
     Route: 048
  4. MYFENAX [Suspect]
     Active Substance: MYCOPHENOLATE MOFETIL
     Dosage: 250 MG, UNK
     Route: 048

REACTIONS (2)
  - Angina pectoris [Unknown]
  - Renal pain [Unknown]
